FAERS Safety Report 22315538 (Version 1)
Quarter: 2023Q2

REPORT INFORMATION
  Report Type: Spontaneous
  Country: US (occurrence: None)
  Receive Date: 20230511
  Receipt Date: 20230511
  Transmission Date: 20230721
  Serious: No
  Sender: FDA-Public Use
  Company Number: None

PATIENT
  Age: 58 Year
  Sex: Male

DRUGS (1)
  1. REPATHA [Suspect]
     Active Substance: EVOLOCUMAB
     Indication: Arteriosclerosis
     Dosage: INJECT 140MG SUBCUTANEOUSLY EVERY 2 WEEKS AS DIRECTED.
     Route: 058
     Dates: start: 202302

REACTIONS (1)
  - Nephrolithiasis [None]
